FAERS Safety Report 5210471-9 (Version None)
Quarter: 2007Q1

REPORT INFORMATION
  Report Type: 
  Country: None (occurrence: None)
  Receive Date: 20070116
  Receipt Date: 20070116
  Transmission Date: 20070707
  Serious: No
  Sender: FDA-Public Use
  Company Number: None

PATIENT
  Age: 12 Year
  Sex: Male
  Weight: 39.3 kg

DRUGS (1)
  1. REMICADE [Suspect]
     Dosage: 197 MG ONCE IV PIGGYBACK
     Route: 042
     Dates: start: 20070111, end: 20070111

REACTIONS (3)
  - CHEST DISCOMFORT [None]
  - FLUSHING [None]
  - INFUSION RELATED REACTION [None]
